FAERS Safety Report 4454029-8 (Version None)
Quarter: 2004Q3

REPORT INFORMATION
  Report Type: 
  Country: None (occurrence: None)
  Receive Date: 20040826
  Receipt Date: 20040604
  Transmission Date: 20050211
  Serious: No
  Sender: FDA-Public Use
  Company Number: WAES 0402USA00220

PATIENT
  Sex: Female

DRUGS (6)
  1. ZETIA [Suspect]
     Dosage: 10 MG, DAILY, PO
     Route: 048
  2. K-DUR 10 [Concomitant]
  3. LASIX [Concomitant]
  4. NEXIUM [Concomitant]
  5. VASOTEC [Concomitant]
  6. QUININE [Concomitant]

REACTIONS (1)
  - PIGMENTATION DISORDER [None]
